FAERS Safety Report 26157455 (Version 2)
Quarter: 2025Q4

REPORT INFORMATION
  Report Type: Spontaneous
  Country: US (occurrence: US)
  Receive Date: 20251215
  Receipt Date: 20251224
  Transmission Date: 20260118
  Serious: Yes (Other)
  Sender: TORRENT PHARMA INC.
  Company Number: US-TORRENT-00014664

PATIENT
  Age: 60 Year
  Sex: Male
  Weight: 81 kg

DRUGS (8)
  1. PRAMIPEXOLE DIHYDROCHLORIDE [Suspect]
     Active Substance: PRAMIPEXOLE DIHYDROCHLORIDE
     Indication: Parkinson^s disease
     Dosage: 1 MG TABS 3 TIMES DAILY
     Route: 065
     Dates: start: 20190706
  2. ASPIRIN [Concomitant]
     Active Substance: ASPIRIN
     Indication: Product used for unknown indication
     Dosage: 81 MG ONCE A DAY
     Route: 065
  3. Finemet [Concomitant]
     Indication: Product used for unknown indication
     Dosage: 2 TABLETS 3 TIMES A DAY
     Route: 065
  4. JARDIANCE [Concomitant]
     Active Substance: EMPAGLIFLOZIN
     Indication: Product used for unknown indication
     Dosage: 21 MG 1 TABLET BY MOUTH?DAILY,
     Route: 048
  5. PROTONIX [Concomitant]
     Active Substance: PANTOPRAZOLE SODIUM
     Indication: Product used for unknown indication
     Dosage: 40 MG 1 TABLET ONCE A DAY,
     Route: 065
  6. VITAMIN B12 [Concomitant]
     Active Substance: CYANOCOBALAMIN
     Indication: Muscle spasms
     Dosage: UNKNOWN
     Route: 065
  7. ZETIA [Concomitant]
     Active Substance: EZETIMIBE
     Indication: Product used for unknown indication
     Dosage: 10 MG 1 TABLET A DAY
     Route: 065
  8. ZOLOFT [Concomitant]
     Active Substance: SERTRALINE HYDROCHLORIDE
     Indication: Product used for unknown indication
     Route: 065

REACTIONS (9)
  - Impulse-control disorder [Unknown]
  - Gambling disorder [Unknown]
  - Socioeconomic precarity [Unknown]
  - Emotional distress [Unknown]
  - Loss of personal independence in daily activities [Unknown]
  - Abnormal behaviour [Unknown]
  - Hallucination [Unknown]
  - Withdrawal syndrome [Unknown]
  - Bladder disorder [Unknown]
